FAERS Safety Report 7515836-8 (Version None)
Quarter: 2011Q2

REPORT INFORMATION
  Report Type: 
  Country: None (occurrence: None)
  Receive Date: 20110601
  Receipt Date: 20110527
  Transmission Date: 20111010
  Serious: No
  Sender: FDA-Public Use
  Company Number: US-PFIZER INC-2011115518

PATIENT
  Sex: Female

DRUGS (1)
  1. LIPITOR [Suspect]
     Dosage: 5 MG, UNK

REACTIONS (4)
  - GLOSSODYNIA [None]
  - DRUG INTERACTION [None]
  - LIP DRY [None]
  - ORAL PAIN [None]
